FAERS Safety Report 6090146-7 (Version None)
Quarter: 2009Q1

REPORT INFORMATION
  Report Type: 
  Country: None (occurrence: None)
  Receive Date: 20090220
  Receipt Date: 20090205
  Transmission Date: 20090719
  Serious: Yes (Hospitalization)
  Sender: FDA-Public Use
  Company Number: 233383K08USA

PATIENT
  Age: 58 Year
  Sex: Female
  Weight: 64 kg

DRUGS (6)
  1. REBIF [Suspect]
     Indication: MULTIPLE SCLEROSIS
     Dosage: 44 MCG , SUBCUTANEOUS
     Route: 058
     Dates: start: 20031215, end: 20061001
  2. REBIF [Suspect]
     Indication: MULTIPLE SCLEROSIS
     Dosage: 44 MCG , SUBCUTANEOUS
     Route: 058
     Dates: start: 20061001
  3. AMANTADINE HCL [Concomitant]
  4. NEURONTIN [Concomitant]
  5. UNSPECIFIED PREMEDICATION [Concomitant]
  6. OTHER UNSPECIFIED MEDICATIONS (ALL OTHER THERAPEUTIC PRODUCTS) [Concomitant]

REACTIONS (2)
  - BREAST CANCER IN SITU [None]
  - BREAST CANCER STAGE III [None]
